FAERS Safety Report 17809666 (Version 1)
Quarter: 2020Q2

REPORT INFORMATION
  Report Type: Spontaneous
  Country: CA (occurrence: CA)
  Receive Date: 20200521
  Receipt Date: 20200521
  Transmission Date: 20200714
  Serious: Yes (Other)
  Sender: FDA-Public Use
  Company Number: CA-ROCHE-2605255

PATIENT
  Age: 11 Year
  Sex: Female

DRUGS (10)
  1. XOLAIR [Suspect]
     Active Substance: OMALIZUMAB
     Route: 065
     Dates: start: 20191125
  2. ZENHALE [Concomitant]
     Active Substance: FORMOTEROL FUMARATE\MOMETASONE FUROATE
     Indication: PRODUCT USED FOR UNKNOWN INDICATION
     Dosage: 2 DF, BID
     Route: 055
     Dates: start: 2017
  3. XOLAIR [Suspect]
     Active Substance: OMALIZUMAB
     Indication: ASTHMA
     Dosage: 75 MG, EVERY 4 WEEKS
     Route: 058
     Dates: start: 20190129
  4. XOLAIR [Suspect]
     Active Substance: OMALIZUMAB
     Dosage: 75 MG, EVERY 4 WEEKS
     Route: 058
     Dates: start: 20200423
  5. PULMICORT TURBUHALER [Concomitant]
     Active Substance: BUDESONIDE
     Indication: PRODUCT USED FOR UNKNOWN INDICATION
     Dosage: 1 DF, PRN
     Route: 055
     Dates: start: 2017
  6. XOLAIR [Suspect]
     Active Substance: OMALIZUMAB
     Dosage: 75 MG, EVERY 4 WEEKS
     Route: 058
     Dates: start: 20191001
  7. XOLAIR [Suspect]
     Active Substance: OMALIZUMAB
     Dosage: 75 MG, EVERY 4 WEEKS
     Route: 058
     Dates: start: 20191028
  8. VENTOLIN [Concomitant]
     Active Substance: ALBUTEROL SULFATE
     Indication: PRODUCT USED FOR UNKNOWN INDICATION
     Dosage: 2 DF, BID
     Route: 055
     Dates: start: 2017
  9. SINGULAIR [Concomitant]
     Active Substance: MONTELUKAST SODIUM
     Indication: PRODUCT USED FOR UNKNOWN INDICATION
     Dosage: 1 DF, QD
     Route: 048
     Dates: start: 2015
  10. REACTINE [CETIRIZINE HYDROCHLORIDE] [Concomitant]
     Active Substance: CETIRIZINE HYDROCHLORIDE
     Indication: PRODUCT USED FOR UNKNOWN INDICATION
     Dosage: 1 DF, PRN
     Route: 048
     Dates: start: 2016

REACTIONS (2)
  - Mass [Unknown]
  - Blood pressure decreased [Unknown]

NARRATIVE: CASE EVENT DATE: 20190129
